FAERS Safety Report 8541528 (Version 3)
Quarter: 2012Q4

REPORT INFORMATION
  Report Type: 
  Country: US (occurrence: US)
  Receive Date: 20120502
  Receipt Date: 20120928
  Transmission Date: 20130627
  Serious: Yes (Other)
  Sender: FDA-Public Use
  Company Number: US-JNJFOC-20120411698

PATIENT
  Age: 59 Year
  Sex: Female
  Weight: 77.11 kg

DRUGS (1)
  1. UNSPECIFIED INGREDIENT [Suspect]
     Indication: DRY EYE
     Dosage: 1 or 2 drops in each eye
     Route: 047
     Dates: start: 20120418, end: 20120419

REACTIONS (4)
  - Chemical burns of eye [Recovered/Resolved]
  - Dry eye [None]
  - Ocular hyperaemia [None]
  - Eye pain [None]
